FAERS Safety Report 17104754 (Version 1)
Quarter: 2019Q4

REPORT INFORMATION
  Report Type: Spontaneous
  Country: US (occurrence: US)
  Receive Date: 20191107
  Receipt Date: 20191107
  Transmission Date: 20200122
  Serious: No
  Sender: FDA-Public Use
  Company Number: None

PATIENT
  Age: 85 Year
  Sex: Female
  Weight: 56.7 kg

DRUGS (1)
  1. MEMANTINE HCL [Suspect]
     Active Substance: MEMANTINE

REACTIONS (4)
  - Malaise [None]
  - Back pain [None]
  - Musculoskeletal pain [None]
  - Neck pain [None]

NARRATIVE: CASE EVENT DATE: 20191015
